FAERS Safety Report 6423277-X (Version None)
Quarter: 2009Q4

REPORT INFORMATION
  Report Type: 
  Country: None (occurrence: None)
  Receive Date: 20091102
  Receipt Date: 20091028
  Transmission Date: 20100525
  Serious: Yes (Death)
  Sender: FDA-Public Use
  Company Number: JP-BAYER-200914169BYL

PATIENT
  Age: 87 Year
  Sex: Male

DRUGS (3)
  1. NEXAVAR [Suspect]
     Indication: RENAL CELL CARCINOMA STAGE IV
     Dosage: UNIT DOSE: 200 MG
     Route: 048
     Dates: start: 20090318, end: 20090421
  2. NEXAVAR [Suspect]
     Dosage: 400MG / EVERY SECOND DAY
     Route: 048
     Dates: start: 20090430, end: 20090929
  3. NEXAVAR [Suspect]
     Dosage: TOTAL DAILY DOSE: 800 MG  UNIT DOSE: 200 MG
     Route: 048
     Dates: start: 20090930, end: 20091014

REACTIONS (2)
  - MULTI-ORGAN FAILURE [None]
  - PYREXIA [None]
